FAERS Safety Report 10060539 (Version 1)
Quarter: 2014Q2

REPORT INFORMATION
  Report Type: Spontaneous
  Country: IT (occurrence: BE)
  Receive Date: 20140404
  Receipt Date: 20140404
  Transmission Date: 20141212
  Serious: Yes (Other)
  Sender: FDA-Public Use
  Company Number: BE-FRI-1000066115

PATIENT
  Age: 69 Year
  Sex: Female

DRUGS (1)
  1. NEBIVOLOL [Suspect]

REACTIONS (1)
  - Bundle branch block left [Unknown]
